FAERS Safety Report 17482264 (Version 3)
Quarter: 2020Q3

REPORT INFORMATION
  Report Type: Other
  Country: JP (occurrence: JP)
  Receive Date: 20200302
  Receipt Date: 20200728
  Transmission Date: 20201102
  Serious: Yes (Other)
  Sender: FDA-Public Use
  Company Number: JP-ROCHE-2559557

PATIENT

DRUGS (1)
  1. LUCENTIS [Suspect]
     Active Substance: RANIBIZUMAB
     Indication: CHOROIDAL NEOVASCULARISATION
     Dosage: 0.05 ML
     Route: 050

REACTIONS (5)
  - Choroidal neovascularisation [Unknown]
  - Disease progression [Unknown]
  - Visual impairment [Unknown]
  - Visual acuity reduced [Unknown]
  - Chorioretinal atrophy [Unknown]
